FAERS Safety Report 4591037-0 (Version None)
Quarter: 2005Q1

REPORT INFORMATION
  Report Type: 
  Country: None (occurrence: None)
  Receive Date: 20050222
  Receipt Date: 20050222
  Transmission Date: 20050727
  Serious: Yes (Life-Threatening, Hospitalization, Disabling)
  Sender: FDA-Public Use
  Company Number: None

PATIENT
  Age: 77 Year
  Sex: Female
  Weight: 73 kg

DRUGS (2)
  1. SEROQUEL [Suspect]
     Indication: AGITATION
     Dosage: 100-200 MG   1-2 TIMES/DAY  ORAL
     Route: 048
     Dates: start: 20050203, end: 20050204
  2. SEROQUEL [Suspect]
     Indication: ANXIETY
     Dosage: 100-200 MG   1-2 TIMES/DAY  ORAL
     Route: 048
     Dates: start: 20050203, end: 20050204

REACTIONS (6)
  - ARRHYTHMIA [None]
  - ASTHENIA [None]
  - ATRIAL FIBRILLATION [None]
  - CARDIAC ARREST [None]
  - CEREBROVASCULAR ACCIDENT [None]
  - VENTRICULAR FIBRILLATION [None]
